FAERS Safety Report 6636999-2 (Version None)
Quarter: 2010Q1

REPORT INFORMATION
  Report Type: 
  Country: None (occurrence: None)
  Receive Date: 20100316
  Receipt Date: 20100304
  Transmission Date: 20100710
  Serious: Yes (Hospitalization)
  Sender: FDA-Public Use
  Company Number: DE-ELI_LILLY_AND_COMPANY-DE201003001178

PATIENT
  Sex: Female

DRUGS (5)
  1. CYMBALTA [Suspect]
     Indication: DEPRESSION
     Dosage: 90 MG, UNK
     Route: 048
     Dates: start: 20080101
  2. ATOSIL [Concomitant]
     Dosage: UNK, UNKNOWN
  3. LYRICA [Concomitant]
     Dosage: UNK, UNKNOWN
  4. MIRTAZAPINE [Concomitant]
     Dosage: UNK, UNKNOWN
  5. SALOFALK [Concomitant]
     Dosage: 2 D/F, 3/D

REACTIONS (1)
  - COLITIS ISCHAEMIC [None]
